FAERS Safety Report 9046888 (Version 1)
Quarter: 2013Q1

REPORT INFORMATION
  Report Type: Spontaneous
  Country: US (occurrence: None)
  Receive Date: 20130129
  Receipt Date: 20130129
  Transmission Date: 20140127
  Serious: No
  Sender: FDA-Public Use
  Company Number: None

PATIENT
  Age: 35 Year
  Sex: Male
  Weight: 85.28 kg

DRUGS (2)
  1. ANDRODERM [Suspect]
     Indication: BLOOD TESTOSTERONE DECREASED
     Dosage: 4MG  ONE PATCH   EVERY 24 HOURS  TRANSDERMAL?1.5  MONTHS
     Route: 062
  2. ANDRODERM [Suspect]
     Indication: FATIGUE
     Dosage: 4MG  ONE PATCH   EVERY 24 HOURS  TRANSDERMAL?1.5  MONTHS
     Route: 062

REACTIONS (11)
  - Abdominal discomfort [None]
  - Flatulence [None]
  - Abdominal pain upper [None]
  - Dyspepsia [None]
  - Eructation [None]
  - Vomiting [None]
  - Fatigue [None]
  - Pruritus [None]
  - Burning sensation [None]
  - Haemorrhage [None]
  - Impaired healing [None]
